FAERS Safety Report 7329053-8 (Version None)
Quarter: 2011Q1

REPORT INFORMATION
  Report Type: 
  Country: None (occurrence: None)
  Receive Date: 20110303
  Receipt Date: 20110301
  Transmission Date: 20110831
  Serious: Yes (Hospitalization)
  Sender: FDA-Public Use
  Company Number: CH-PFIZER INC-2011044020

PATIENT
  Age: 66 Year
  Sex: Male

DRUGS (7)
  1. ENALAPRIL MALEATE [Concomitant]
     Dosage: 20 MG, 2X/DAY
     Dates: start: 20110112, end: 20110201
  2. DEPAKENE [Concomitant]
     Dosage: 2500 MG, 1X/DAY
     Route: 048
  3. TRANSTEC TTS [Concomitant]
     Dosage: UNK
     Dates: start: 20110205
  4. SORTIS [Suspect]
     Dosage: 10 MG, 1X/DAY
     Route: 048
  5. ADALAT CC [Interacting]
     Indication: HYPERTENSION
     Dosage: 30 MG, 1X/DAY
     Route: 048
     Dates: start: 20110112, end: 20110201
  6. BACTRIM [Concomitant]
     Dosage: 800 / 160 MG THREE TIMES WEEKLY
     Dates: end: 20110101
  7. TEGRETOL [Interacting]
     Dosage: 1200 MG DAILY
     Route: 048
     Dates: end: 20110208

REACTIONS (5)
  - CONFUSIONAL STATE [None]
  - ACCIDENTAL OVERDOSE [None]
  - DRUG INTERACTION [None]
  - ATAXIA [None]
  - PYREXIA [None]
